FAERS Safety Report 4651122-1 (Version None)
Quarter: 2005Q2

REPORT INFORMATION
  Report Type: 
  Country: None (occurrence: None)
  Receive Date: 20050503
  Receipt Date: 20050426
  Transmission Date: 20051028
  Serious: Yes (Other)
  Sender: FDA-Public Use
  Company Number: US-JNJFOC-20050406756

PATIENT
  Sex: Male

DRUGS (2)
  1. CHILDREN'S TYLENOL BUBBLEGUM BURST [Suspect]
  2. CHILDREN'S TYLENOL BUBBLEGUM BURST [Suspect]

REACTIONS (1)
  - CONVULSION [None]
